FAERS Safety Report 6306698-5 (Version None)
Quarter: 2009Q3

REPORT INFORMATION
  Report Type: 
  Country: None (occurrence: None)
  Receive Date: 20090810
  Receipt Date: 20090727
  Transmission Date: 20100115
  Serious: Yes (Hospitalization)
  Sender: FDA-Public Use
  Company Number: GB-1170422

PATIENT
  Sex: Male

DRUGS (6)
  1. TOBRADEX [Suspect]
     Indication: EYE INFLAMMATION
     Dosage: OPHTHALMIC
     Route: 047
     Dates: start: 20080717, end: 20080901
  2. TOBRADEX [Suspect]
     Indication: EYE OPERATION
     Dosage: OPHTHALMIC
     Route: 047
     Dates: start: 20080717, end: 20080901
  3. BRIMONIDINE TARTRATE [Suspect]
     Indication: EYE INFLAMMATION
     Dosage: OPHTHALMIC
     Route: 047
     Dates: start: 20080717, end: 20080901
  4. BRIMONIDINE TARTRATE [Suspect]
     Indication: EYE OPERATION
     Dosage: OPHTHALMIC
     Route: 047
     Dates: start: 20080717, end: 20080901
  5. CHLORAMPHENICOL [Suspect]
     Indication: EYE OPERATION
     Dosage: OPHTHALMIC
     Route: 047
     Dates: start: 20080801, end: 20080901
  6. PREDNISOLONE [Suspect]
     Indication: EYE INFLAMMATION
     Dosage: OPHTHALMIC
     Route: 047
     Dates: start: 20080801, end: 20080901

REACTIONS (2)
  - ASTHMA [None]
  - HYPERSENSITIVITY [None]
